FAERS Safety Report 15427176 (Version 1)
Quarter: 2018Q3

REPORT INFORMATION
  Report Type: Spontaneous
  Country: US (occurrence: US)
  Receive Date: 20180925
  Receipt Date: 20180925
  Transmission Date: 20181010
  Serious: No
  Sender: FDA-Public Use
  Company Number: US-INDIVIOR LIMITED-INDV-110478-2018

PATIENT
  Age: 58 Year
  Sex: Male

DRUGS (10)
  1. SUBOXONE [Suspect]
     Active Substance: BUPRENORPHINE HYDROCHLORIDE\NALOXONE HYDROCHLORIDE
     Indication: DRUG DEPENDENCE
     Dosage: 8 MG, BID
     Route: 060
     Dates: start: 201804
  2. BENZODIAZEPINE DERIVATIVES [Suspect]
     Active Substance: BENZODIAZEPINE
     Indication: PRODUCT USED FOR UNKNOWN INDICATION
     Dosage: UNK
     Route: 065
  3. AMITRIPTYLINE [Concomitant]
     Active Substance: AMITRIPTYLINE
     Indication: INSOMNIA
     Dosage: 25MG, BEDTIME
     Route: 065
  4. SUBOXONE [Suspect]
     Active Substance: BUPRENORPHINE HYDROCHLORIDE\NALOXONE HYDROCHLORIDE
     Dosage: ONE FULL 8MG FILM
     Route: 060
     Dates: start: 20180418, end: 20180418
  5. SUBOXONE [Suspect]
     Active Substance: BUPRENORPHINE HYDROCHLORIDE\NALOXONE HYDROCHLORIDE
     Dosage: ONE FULL 8MG FILM
     Route: 060
     Dates: start: 20180419
  6. MARIJUANA [Suspect]
     Active Substance: CANNABIS SATIVA SUBSP. INDICA TOP
     Indication: PRODUCT USED FOR UNKNOWN INDICATION
     Dosage: UNK
     Route: 065
  7. AMITRIPTYLINE [Concomitant]
     Active Substance: AMITRIPTYLINE
     Indication: NEURALGIA
  8. SUBOXONE [Suspect]
     Active Substance: BUPRENORPHINE HYDROCHLORIDE\NALOXONE HYDROCHLORIDE
     Indication: PAIN
     Dosage: CUTTING FILMS INTO THREE, TAKING THE FILMS THROUGHOUT,UNK
     Route: 060
     Dates: start: 201804
  9. SUBOXONE [Suspect]
     Active Substance: BUPRENORPHINE HYDROCHLORIDE\NALOXONE HYDROCHLORIDE
     Indication: DRUG DEPENDENCE
     Dosage: CUTTING AND TAKING 2.5MG, UNK
     Route: 060
  10. VISTARIL                           /00058402/ [Concomitant]
     Active Substance: HYDROXYZINE HYDROCHLORIDE
     Indication: PRODUCT USED FOR UNKNOWN INDICATION
     Dosage: UNK
     Route: 065

REACTIONS (26)
  - Logorrhoea [Unknown]
  - Unevaluable event [Unknown]
  - Oral pain [Unknown]
  - Malaise [Unknown]
  - Back pain [Unknown]
  - Product use issue [Not Recovered/Not Resolved]
  - Incoherent [Unknown]
  - Aggression [Unknown]
  - Anger [Unknown]
  - Tooth loss [Recovered/Resolved]
  - Hypoaesthesia oral [Not Recovered/Not Resolved]
  - Nervousness [Unknown]
  - Intentional underdose [Not Recovered/Not Resolved]
  - Feeling abnormal [Unknown]
  - Hostility [Unknown]
  - Wrong technique in product usage process [Recovered/Resolved]
  - Drug abuse [Unknown]
  - Drug screen negative [Unknown]
  - Oral administration complication [Unknown]
  - Dysphagia [Unknown]
  - Drug screen positive [Unknown]
  - Oral discomfort [Unknown]
  - Insomnia [Unknown]
  - Dysphemia [Unknown]
  - Mania [Unknown]
  - Psychomotor hyperactivity [Unknown]

NARRATIVE: CASE EVENT DATE: 20180418
